FAERS Safety Report 13273733 (Version 1)
Quarter: 2017Q1

REPORT INFORMATION
  Report Type: Spontaneous
  Country: PT (occurrence: PT)
  Receive Date: 20170227
  Receipt Date: 20170227
  Transmission Date: 20170428
  Serious: Yes (Other)
  Sender: FDA-Public Use
  Company Number: PT-PFIZER INC-2016281046

PATIENT
  Age: 35 Year
  Sex: Female

DRUGS (1)
  1. PANTOPRAZOLE [Suspect]
     Active Substance: PANTOPRAZOLE SODIUM
     Indication: DYSPEPSIA
     Dosage: UNK
     Route: 048

REACTIONS (6)
  - Loss of consciousness [Unknown]
  - Vomiting [Unknown]
  - Diarrhoea [Unknown]
  - Urticaria [Unknown]
  - Anaphylactic reaction [Unknown]
  - Pruritus [Unknown]
